FAERS Safety Report 14338610 (Version 1)
Quarter: 2017Q4

REPORT INFORMATION
  Report Type: Spontaneous
  Country: CH (occurrence: CH)
  Receive Date: 20171229
  Receipt Date: 20171229
  Transmission Date: 20180321
  Serious: Yes (Other)
  Sender: FDA-Public Use
  Company Number: CH-TEVA-2017-CH-837819

PATIENT
  Age: 36 Year
  Sex: Female

DRUGS (1)
  1. PANTOPRAZOL-MEPHA 20MG [Suspect]
     Active Substance: PANTOPRAZOLE
     Indication: PRODUCT USED FOR UNKNOWN INDICATION
     Route: 048
     Dates: start: 201712, end: 201712

REACTIONS (3)
  - Maternal exposure during pregnancy [Unknown]
  - Drug dispensing error [Unknown]
  - Contraindicated product administered [Unknown]

NARRATIVE: CASE EVENT DATE: 201712
